FAERS Safety Report 19259787 (Version 4)
Quarter: 2023Q2

REPORT INFORMATION
  Report Type: Spontaneous
  Country: US (occurrence: US)
  Receive Date: 20210514
  Receipt Date: 20230614
  Transmission Date: 20230722
  Serious: No
  Sender: FDA-Public Use
  Company Number: US-PFIZER INC-2021499330

PATIENT
  Age: 74 Year
  Sex: Female
  Weight: 107.95 kg

DRUGS (1)
  1. VYNDAMAX [Suspect]
     Active Substance: TAFAMIDIS
     Dosage: 61 MG

REACTIONS (9)
  - Memory impairment [Unknown]
  - Depression [Unknown]
  - Anxiety [Unknown]
  - Obesity [Unknown]
  - Mobility decreased [Unknown]
  - Fatigue [Unknown]
  - Dyspnoea [Unknown]
  - Product dose omission issue [Unknown]
  - Product administration interrupted [Unknown]
